FAERS Safety Report 7708596-9 (Version None)
Quarter: 2011Q3

REPORT INFORMATION
  Report Type: 
  Country: None (occurrence: None)
  Receive Date: 20110825
  Receipt Date: 20110817
  Transmission Date: 20111222
  Serious: Yes (Hospitalization, Disabling)
  Sender: FDA-Public Use
  Company Number: US-US-EMD SERONO, INC.-7063307

PATIENT
  Sex: Male

DRUGS (4)
  1. REBIF [Suspect]
     Indication: MULTIPLE SCLEROSIS
     Route: 058
     Dates: start: 20060811, end: 20110501
  2. REBIF [Suspect]
     Route: 058
     Dates: start: 20110523
  3. CARBATROL [Concomitant]
     Indication: EPILEPSY
  4. LAMICTAL [Concomitant]
     Indication: EPILEPSY

REACTIONS (3)
  - FALL [None]
  - HIP FRACTURE [None]
  - MULTIPLE SCLEROSIS RELAPSE [None]
